FAERS Safety Report 14045528 (Version 9)
Quarter: 2019Q4

REPORT INFORMATION
  Report Type: Spontaneous
  Country: KR (occurrence: KR)
  Receive Date: 20171005
  Receipt Date: 20191223
  Transmission Date: 20200122
  Serious: Yes (Death, Other)
  Sender: FDA-Public Use
  Company Number: KR-009507513-1710KOR000155

PATIENT
  Age: 63 Year
  Sex: Male
  Weight: 78.9 kg

DRUGS (26)
  1. ALBUMIN HUMAN [Concomitant]
     Active Substance: ALBUMIN HUMAN
     Indication: HYPOALBUMINAEMIA
     Dosage: STRENGTH: 20 % / 50 MILLILITERS,100 MILLILITER, ONCE DAILY
     Route: 042
     Dates: start: 20170808, end: 20170810
  2. YUHAN DEXAMETHASONE (DEXAMETHASONE) [Concomitant]
     Indication: PROPHYLAXIS
     Dosage: 5 MG, ONCE DAILY; STRENGTH: 5 MG/ML
     Route: 042
     Dates: start: 20170727, end: 20170727
  3. FLAGYL [Concomitant]
     Active Substance: METRONIDAZOLE\METRONIDAZOLE HYDROCHLORIDE
     Indication: INFECTION PROPHYLAXIS
     Dosage: 100 MILLILITER, THREE TIMES A DAY
     Route: 042
     Dates: start: 20170803, end: 20170810
  4. LASIX [Concomitant]
     Active Substance: FUROSEMIDE
     Indication: PROPHYLAXIS
     Dosage: 20 MILLIGRAM, ONCE DAILY (QD)
     Route: 042
     Dates: start: 20170728, end: 20170806
  5. TAMIPOOL [Concomitant]
     Active Substance: VITAMINS
     Indication: VITAMIN SUPPLEMENTATION
     Dosage: 1 ^AMPLE^, ONCE DAILY
     Route: 042
     Dates: start: 20170728, end: 20170808
  6. PHYTONADIONE. [Concomitant]
     Active Substance: PHYTONADIONE
     Indication: HAEMORRHAGE PROPHYLAXIS
     Dosage: 10 MILLIGRAM, ONCE DAILY
     Route: 042
     Dates: start: 20170727, end: 20170727
  7. CRESNON [Concomitant]
     Indication: HYPERLIPIDAEMIA
     Dosage: 5 MILLIGRAM, ONCE DAILY
     Route: 048
     Dates: start: 20170804, end: 20170810
  8. TRANEXAMIC ACID. [Concomitant]
     Active Substance: TRANEXAMIC ACID
     Indication: HAEMORRHAGE PROPHYLAXIS
     Dosage: 500 MILLIGRAM, ONCE DAILY; STRENGTH: 500MG/5ML
     Route: 042
     Dates: start: 20170804, end: 20170806
  9. LAMINA G [Concomitant]
     Active Substance: SODIUM ALGINATE
     Indication: GASTRITIS PROPHYLAXIS
     Dosage: 20 MILLILITER, THREE TIMES A DAY (TID)
     Route: 048
     Dates: start: 20170728, end: 20170730
  10. FURTMAN [Concomitant]
     Indication: MINERAL SUPPLEMENTATION
     Dosage: 2 MILLILITER, ONCE EVERY 2 DAYS
     Route: 042
     Dates: start: 20170802, end: 20170806
  11. DIFLUCAN [Concomitant]
     Active Substance: FLUCONAZOLE
     Indication: INFECTION PROPHYLAXIS
     Dosage: 200 MG, ONCE DAILY; STRENGTH: 100MG/50ML
     Route: 042
     Dates: start: 20170728, end: 20170808
  12. ZOYLEX [Concomitant]
     Indication: INFECTION PROPHYLAXIS
     Dosage: 400 MILLIGRAM, TWICE A DAY
     Route: 048
     Dates: start: 20170727, end: 20170804
  13. MACPERAN [Concomitant]
     Active Substance: METOCLOPRAMIDE HYDROCHLORIDE
     Indication: PROPHYLAXIS
     Dosage: 10 MILLIGRAM, ONCE DAILY
     Route: 042
     Dates: start: 20170727, end: 20170802
  14. MAXIPIME [Concomitant]
     Active Substance: CEFEPIME HYDROCHLORIDE
     Indication: INFECTION PROPHYLAXIS
     Dosage: 2 GRAM, THREE TIMES DAY
     Route: 042
     Dates: start: 20170727, end: 20170808
  15. MEROPEN [Concomitant]
     Active Substance: MEROPENEM
     Indication: INFECTION PROPHYLAXIS
     Dosage: 1 GRAM, TWICE A DAY
     Route: 042
     Dates: start: 20170808, end: 20170810
  16. VANCOCIN [Concomitant]
     Active Substance: VANCOMYCIN HYDROCHLORIDE
     Indication: INFECTION PROPHYLAXIS
     Dosage: 1 GRAM, ONCE DAILY
     Route: 042
     Dates: start: 20170810, end: 20170810
  17. CYTARABINE. [Concomitant]
     Active Substance: CYTARABINE
     Indication: ACUTE MYELOID LEUKAEMIA
     Dosage: 380 MG, ONCE DAILY STRENGTH: 100MG/5ML
     Route: 042
     Dates: start: 20170727, end: 20170802
  18. LANTUS [Concomitant]
     Active Substance: INSULIN GLARGINE
     Indication: DIABETES MELLITUS
     Dosage: 7 INTERNATIONAL UNIT (IU), QD
     Route: 058
     Dates: start: 20170728, end: 20170809
  19. LASIX [Concomitant]
     Active Substance: FUROSEMIDE
     Indication: PROPHYLAXIS
     Dosage: 80 MILLIGRAM, ONCE DALIY
     Route: 048
     Dates: start: 20170802, end: 20170810
  20. ZAVEL [Concomitant]
     Active Substance: IDARUBICIN HYDROCHLORIDE
     Indication: ACUTE MYELOID LEUKAEMIA
     Dosage: 22 MILLIGRAM, ONCE DAILY
     Route: 042
     Dates: start: 20170727, end: 20170729
  21. ZYLORIC [Concomitant]
     Active Substance: ALLOPURINOL
     Indication: PROPHYLAXIS
     Dosage: 300 MILLIGRAM, ONCE A DAY
     Route: 048
     Dates: start: 20170727, end: 20170730
  22. NOXAFIL [Suspect]
     Active Substance: POSACONAZOLE
     Indication: ANTIFUNGAL PROPHYLAXIS
     Dosage: 300 MILLIGRAM, ONCE A DAY
     Route: 048
     Dates: start: 20170810, end: 20170810
  23. ALOXI [Concomitant]
     Active Substance: PALONOSETRON HYDROCHLORIDE
     Indication: PROPHYLAXIS OF NAUSEA AND VOMITING
     Dosage: 0.25 MG, ONCE DAILY
     Route: 042
     Dates: start: 20170727, end: 20170727
  24. APIDRA [Concomitant]
     Active Substance: INSULIN GLULISINE
     Indication: DIABETES MELLITUS
     Dosage: 4 INTERNATIONAL UNIT, ONCE DAILY, STRENGTH: 300IU/3ML
     Route: 058
     Dates: start: 20170728, end: 20170805
  25. PLAKON [Concomitant]
     Indication: PROPHYLAXIS
     Dosage: 3 MG, PRN (AS NEEDED), STRENGTH: 3MG/2ML
     Route: 042
     Dates: start: 20170728, end: 20170810
  26. SMOFKABIVEN [Concomitant]
     Active Substance: AMINO ACIDS\DEXTROSE\ELECTROLYTES NOS\SOYBEAN OIL
     Indication: PROPHYLAXIS
     Dosage: 1477 ML, ONCE DAILY
     Route: 042
     Dates: start: 20170727, end: 20170810

REACTIONS (2)
  - Febrile neutropenia [Unknown]
  - Sepsis [Fatal]

NARRATIVE: CASE EVENT DATE: 20170810
